FAERS Safety Report 4986710-6 (Version None)
Quarter: 2006Q2

REPORT INFORMATION
  Report Type: 
  Country: None (occurrence: None)
  Receive Date: 20060428
  Receipt Date: 20051031
  Transmission Date: 20061013
  Serious: Yes (Hospitalization)
  Sender: FDA-Public Use
  Company Number: US-MERCK-0511USA00319

PATIENT
  Age: 42 Year
  Sex: Female

DRUGS (12)
  1. VIOXX [Suspect]
     Route: 048
     Dates: start: 20000101, end: 20030301
  2. CARDIZEM CD [Concomitant]
     Route: 065
  3. MAXZIDE [Concomitant]
     Route: 065
  4. RISPERDAL [Concomitant]
     Route: 065
  5. SYNTHROID [Concomitant]
     Route: 065
  6. SINGULAIR [Concomitant]
     Route: 048
  7. VANCERIL [Concomitant]
     Route: 065
  8. DEPAKOTE [Concomitant]
     Route: 065
  9. COMBIVENT [Concomitant]
     Route: 065
  10. ACIPHEX [Concomitant]
     Route: 065
  11. COGENTIN [Concomitant]
     Route: 065
  12. PARLODEL [Concomitant]
     Route: 065

REACTIONS (14)
  - ANXIETY DISORDER [None]
  - BLOOD GLUCOSE INCREASED [None]
  - CHRONIC OBSTRUCTIVE PULMONARY DISEASE [None]
  - DIVERTICULITIS [None]
  - HYPOAESTHESIA [None]
  - HYPOKALAEMIA [None]
  - HYPONATRAEMIA [None]
  - HYPOXIA [None]
  - LUNG NEOPLASM [None]
  - MYOCARDIAL INFARCTION [None]
  - PNEUMONIA [None]
  - POLYP COLORECTAL [None]
  - RECTAL HAEMORRHAGE [None]
  - RESPIRATORY FAILURE [None]
